FAERS Safety Report 4527177-1 (Version None)
Quarter: 2004Q4

REPORT INFORMATION
  Report Type: 
  Country: None (occurrence: None)
  Receive Date: 20041213
  Receipt Date: 20041130
  Transmission Date: 20050328
  Serious: Yes (Death, Hospitalization)
  Sender: FDA-Public Use
  Company Number: 2004-05057

PATIENT
  Age: 52 Year
  Sex: Male

DRUGS (8)
  1. DIPYRIDAMOLE (WATSON LABORATORIES) (DIPYRIDAMOLE) TABLET, 50 MG [Suspect]
     Indication: TRANSIENT ISCHAEMIC ATTACK
     Dosage: 75 MG, TID
     Dates: end: 20021101
  2. CYTARABINE [Suspect]
     Indication: TRANSIENT ISCHAEMIC ATTACK
     Dosage: 100 MG/M2 , DAILY
     Dates: start: 20021101, end: 20021101
  3. IDARUBICIN HCL [Concomitant]
  4. ONDANSETRON HCL [Concomitant]
  5. AMIKACIN (AMIKACIN0 [Concomitant]
  6. CEFEPIME (CEFIPIME) [Concomitant]
  7. BENCYCLANE FUMARATE (BENCYCLANE FUMARATE) [Concomitant]
  8. DEXTRAN (DEXTRAN) [Concomitant]

REACTIONS (3)
  - DRUG INTERACTION [None]
  - DRUG INTERACTION POTENTIATION [None]
  - HEPATOTOXICITY [None]
